FAERS Safety Report 6650369-2 (Version None)
Quarter: 2010Q1

REPORT INFORMATION
  Report Type: 
  Country: None (occurrence: None)
  Receive Date: 20100325
  Receipt Date: 20100312
  Transmission Date: 20100710
  Serious: Yes (Hospitalization)
  Sender: FDA-Public Use
  Company Number: US-ALEXION-A201000046

PATIENT
  Sex: Male
  Weight: 77.007 kg

DRUGS (26)
  1. SOLIRIS [Suspect]
     Indication: PAROXYSMAL NOCTURNAL HAEMOGLOBINURIA
     Dosage: 600 MG, QW X 4 WEEKS
     Route: 042
     Dates: start: 20070713, end: 20070803
  2. SOLIRIS [Suspect]
     Dosage: 900 MG,
     Route: 042
     Dates: start: 20070810, end: 20081003
  3. SOLIRIS [Suspect]
     Dosage: 900 MG, UNK
     Route: 042
     Dates: start: 20081006
  4. SOLIRIS [Suspect]
     Dosage: UNK
     Route: 042
     Dates: end: 20090101
  5. SOLIRIS [Suspect]
     Dosage: 600 MG, QW X 4WEEKS
     Route: 042
     Dates: start: 20090305, end: 20090323
  6. SOLIRIS [Suspect]
     Dosage: 900 MG, Q2W
     Route: 042
     Dates: start: 20090101
  7. SOLIRIS [Suspect]
     Dosage: 900 MG, Q9-10 DAYS
     Route: 042
  8. AMLODIPINE [Concomitant]
     Dosage: 10 MG, QD
     Route: 048
     Dates: start: 20090520
  9. ATIVAN [Concomitant]
     Indication: NAUSEA
     Dosage: 1 MG, TID PRN
     Route: 048
     Dates: start: 20091210
  10. DILAUDID [Concomitant]
     Indication: PAIN
     Dosage: 1 TABLET Q4-6H PRN
     Route: 048
     Dates: start: 20100108
  11. FENTANYL [Concomitant]
     Dosage: 1 PATCH Q72H
     Dates: start: 20100108
  12. FLUCONAZOLE [Concomitant]
     Indication: OESOPHAGEAL CANDIDIASIS
     Dosage: 200 MG, 2 TABLETS
  13. FLUCONAZOLE [Concomitant]
     Indication: FUNGAL ENDOCARDITIS
  14. FOLIC ACID [Concomitant]
     Dosage: 1 MG, QD
     Route: 048
     Dates: start: 20070921
  15. INSULIN ASPART [Concomitant]
     Dosage: 100 UNITS/ML
     Route: 058
     Dates: start: 20100108
  16. INSULIN GLARGINE [Concomitant]
     Dosage: 100 UNITS/ML
     Route: 058
     Dates: start: 20100108
  17. LOVENOX [Concomitant]
     Indication: PAROXYSMAL NOCTURNAL HAEMOGLOBINURIA
     Dosage: 60 MG/0.6 ML
     Route: 058
     Dates: start: 20090520
  18. METOPROLOL [Concomitant]
     Dosage: 50 MG, BID
     Route: 048
     Dates: start: 20070824
  19. MICARDIS [Concomitant]
     Dosage: 40 MG, QD
     Route: 048
     Dates: start: 20100108
  20. NEXIUM [Concomitant]
     Dosage: 40 MG, QD
     Dates: start: 20081124
  21. PRILOSEC [Concomitant]
     Dosage: 20 MG, BID
     Route: 048
     Dates: start: 20091116
  22. PHENERGAN HCL [Concomitant]
     Dosage: 25 MG, TID
     Route: 048
     Dates: start: 20091222
  23. REGLAN [Concomitant]
     Dosage: 10 MG, BID
     Route: 048
     Dates: start: 20090415
  24. SENNA-S                            /01035001/ [Concomitant]
     Dosage: 1 TABLET PO BID
     Route: 048
     Dates: start: 20071112
  25. WELLBUTRIN [Concomitant]
     Dosage: 150 MG, BID
     Dates: start: 20090617
  26. ZOFRAN [Concomitant]
     Indication: NAUSEA
     Dosage: 8 MG, BID
     Dates: start: 20090604

REACTIONS (13)
  - ABDOMINAL PAIN [None]
  - BACK PAIN [None]
  - CHEST DISCOMFORT [None]
  - DEHYDRATION [None]
  - DRUG INTOLERANCE [None]
  - FEBRILE NEUTROPENIA [None]
  - FEELING ABNORMAL [None]
  - FLANK PAIN [None]
  - HAEMOLYSIS [None]
  - NAUSEA [None]
  - OEDEMA [None]
  - TRANSFUSION [None]
  - VOMITING [None]
